FAERS Safety Report 20167903 (Version 3)
Quarter: 2022Q3

REPORT INFORMATION
  Report Type: Other
  Country: JP (occurrence: JP)
  Receive Date: 20211210
  Receipt Date: 20220719
  Transmission Date: 20221027
  Serious: Yes (Other)
  Sender: FDA-Public Use
  Company Number: JP-CHUGAI-2021030754

PATIENT
  Age: 69 Year
  Sex: Female
  Weight: 54.3 kg

DRUGS (3)
  1. TECENTRIQ [Suspect]
     Active Substance: ATEZOLIZUMAB
     Indication: Triple negative breast cancer
     Dosage: 40 MILLIGRAM, ONCE/2WEEKS?MOST RECENT DOSE: 18/AUG/2021
     Route: 041
     Dates: start: 20210303
  2. AVASTIN [Suspect]
     Active Substance: BEVACIZUMAB
     Indication: Triple negative breast cancer
     Route: 041
  3. PACLITAXEL [Concomitant]
     Active Substance: PACLITAXEL
     Indication: Triple negative breast cancer
     Dosage: UNK
     Route: 041

REACTIONS (3)
  - Adrenocorticotropic hormone deficiency [Not Recovered/Not Resolved]
  - Osteonecrosis [Unknown]
  - Radiation pneumonitis [Recovering/Resolving]

NARRATIVE: CASE EVENT DATE: 20210317
